FAERS Safety Report 5888666-0 (Version None)
Quarter: 2008Q3

REPORT INFORMATION
  Report Type: 
  Country: None (occurrence: None)
  Receive Date: 20080916
  Receipt Date: 20080908
  Transmission Date: 20090109
  Serious: Yes (Death, Hospitalization)
  Sender: FDA-Public Use
  Company Number: 2008-01103

PATIENT
  Age: 70 Year
  Sex: Female
  Weight: 44 kg

DRUGS (3)
  1. VELCADE [Suspect]
     Indication: MULTIPLE MYELOMA
     Dosage: 1.6 MG, INTRAVENOUS; 1.67 MG, INTRAVENOUS
     Route: 042
     Dates: start: 20080321, end: 20080324
  2. VELCADE [Suspect]
     Indication: MULTIPLE MYELOMA
     Dosage: 1.6 MG, INTRAVENOUS; 1.67 MG, INTRAVENOUS
     Route: 042
     Dates: start: 20080902, end: 20080902
  3. MAXIPIME [Concomitant]

REACTIONS (3)
  - DIALYSIS [None]
  - RENAL FAILURE ACUTE [None]
  - SEPTIC SHOCK [None]
